FAERS Safety Report 12846835 (Version 2)
Quarter: 2016Q4

REPORT INFORMATION
  Report Type: Spontaneous
  Country: VE (occurrence: VE)
  Receive Date: 20161014
  Receipt Date: 20161025
  Transmission Date: 20170207
  Serious: Yes (Hospitalization, Other)
  Sender: FDA-Public Use
  Company Number: VE-ELI_LILLY_AND_COMPANY-VE201610003650

PATIENT
  Sex: Female

DRUGS (5)
  1. HUMALOG MIX75/25 [Suspect]
     Active Substance: INSULIN LISPRO
     Indication: TYPE 2 DIABETES MELLITUS
     Dosage: 28 IU, BID
     Route: 065
     Dates: start: 2002
  2. DOMPERIDONE [Concomitant]
     Active Substance: DOMPERIDONE
  3. OMEPRAZOLE. [Concomitant]
     Active Substance: OMEPRAZOLE
  4. INSULIN CRYSTALINE [Suspect]
     Active Substance: INSULIN PORK\INSULIN PURIFIED PORK
     Indication: PRODUCT USED FOR UNKNOWN INDICATION
     Dosage: UNK, UNKNOWN
     Route: 065
  5. COLYPAN [Concomitant]
     Active Substance: TRIMEBUTINE MALEATE

REACTIONS (3)
  - Blood glucose increased [Not Recovered/Not Resolved]
  - Intestinal obstruction [Unknown]
  - Renal disorder [Unknown]

NARRATIVE: CASE EVENT DATE: 20160925
